FAERS Safety Report 19999517 (Version 10)
Quarter: 2023Q2

REPORT INFORMATION
  Report Type: Report from Study
  Country: DE (occurrence: DE)
  Receive Date: 20211027
  Receipt Date: 20230613
  Transmission Date: 20230721
  Serious: Yes (Hospitalization, Other)
  Sender: FDA-Public Use
  Company Number: DE-CELLTRION INC.-2021DE014495

PATIENT

DRUGS (14)
  1. RITUXIMAB [Suspect]
     Active Substance: RITUXIMAB
     Indication: Neuromyelitis optica spectrum disorder
     Dosage: FREQUENCY TIME: 378 DAYS
     Route: 042
     Dates: start: 20220831, end: 20220831
  2. RITUXIMAB [Suspect]
     Active Substance: RITUXIMAB
     Dosage: EVERY 15 DAYS
     Route: 042
     Dates: start: 20210818
  3. RITUXIMAB [Suspect]
     Active Substance: RITUXIMAB
     Dosage: EVERY 15 DAYS, SUBSEQUENT DOSES WAS ADMINISTERED ON,03/08/2021 18/AUG/2021 AND LAST DOSE ADMINISTERE
     Route: 042
     Dates: start: 20210803, end: 20220831
  4. PALEXIA [Concomitant]
     Active Substance: TAPENTADOL HYDROCHLORIDE
     Dosage: 50 MG, EVERY 0.5 DAY
  5. ESOMEPRAZOLE [Concomitant]
     Active Substance: ESOMEPRAZOLE
     Dosage: 40 MG EVERY 0.5 DAY 1-0-1
  6. CLONIDINE [Concomitant]
     Active Substance: CLONIDINE
     Dosage: 0.15 MG
  7. ENOXAPARIN SODIUM [Concomitant]
     Active Substance: ENOXAPARIN SODIUM
     Dosage: 40 MG, EVERY 1 DAY
  8. LACTULOSE [Concomitant]
     Active Substance: LACTULOSE
     Dosage: UNK
  9. CHOLECALCIFEROL [Concomitant]
     Active Substance: CHOLECALCIFEROL
     Dosage: 20000 IU, 1/WEEK
  10. MIRTAZAPINE [Concomitant]
     Active Substance: MIRTAZAPINE
     Dosage: 15 MG, EVERY 1 DAY
  11. PREDNISOLONE [Concomitant]
     Active Substance: PREDNISOLONE
     Dosage: 20 MG
  12. PREGABALIN [Concomitant]
     Active Substance: PREGABALIN
     Dosage: 50 MILLIGRAM, 1-2-2-AS NEEDED 1
  13. CITALOPRAM [Concomitant]
     Active Substance: CITALOPRAM HYDROBROMIDE
     Dosage: 10 MILLIGRAM
  14. DULOXETINE [Concomitant]
     Active Substance: DULOXETINE
     Dosage: 30 MG, EVERY 1 DAY

REACTIONS (15)
  - Immunodeficiency [Recovered/Resolved]
  - Cystitis noninfective [Recovered/Resolved]
  - Multiple sclerosis relapse [Not Recovered/Not Resolved]
  - Pneumonia [Recovered/Resolved]
  - Dyspnoea [Recovered/Resolved]
  - Pseudomonas infection [Not Recovered/Not Resolved]
  - Pain in extremity [Recovering/Resolving]
  - COVID-19 [Recovered/Resolved]
  - Sepsis [Unknown]
  - Off label use [Unknown]
  - B-lymphocyte count abnormal [Not Recovered/Not Resolved]
  - Obstructive airways disorder [Recovered/Resolved]
  - Sleep apnoea syndrome [Recovered/Resolved]
  - Depressed mood [Recovering/Resolving]
  - B-lymphocyte count increased [Not Recovered/Not Resolved]

NARRATIVE: CASE EVENT DATE: 20210803
